FAERS Safety Report 6044585-0 (Version None)
Quarter: 2009Q1

REPORT INFORMATION
  Report Type: 
  Country: None (occurrence: None)
  Receive Date: 20090120
  Receipt Date: 20090113
  Transmission Date: 20090719
  Serious: Yes (Hospitalization)
  Sender: FDA-Public Use
  Company Number: US-BIOGENIDEC-2009BI001289

PATIENT
  Age: 48 Year
  Sex: Female
  Weight: 56 kg

DRUGS (2)
  1. AVONEX [Suspect]
     Indication: MULTIPLE SCLEROSIS
     Route: 030
     Dates: start: 20080101, end: 20080101
  2. AVONEX [Suspect]
     Route: 030
     Dates: start: 20080101

REACTIONS (6)
  - ASTHENIA [None]
  - BLOOD AMYLASE INCREASED [None]
  - DEHYDRATION [None]
  - INFLUENZA LIKE ILLNESS [None]
  - LIPASE INCREASED [None]
  - PANCREATITIS [None]
